FAERS Safety Report 9303011 (Version 1)
Quarter: 2013Q2

REPORT INFORMATION
  Report Type: Spontaneous
  Country: BR (occurrence: BR)
  Receive Date: 20130522
  Receipt Date: 20130522
  Transmission Date: 20140414
  Serious: Yes (Other)
  Sender: FDA-Public Use
  Company Number: BR-PFIZER INC-2013152335

PATIENT
  Age: 87 Year
  Sex: Female

DRUGS (1)
  1. XALATAN [Suspect]
     Indication: GLAUCOMA
     Dosage: ONE DROP EACH EYE, ONCE A DAY
     Route: 047
     Dates: start: 201303

REACTIONS (5)
  - Upper limb fracture [Unknown]
  - Balance disorder [Unknown]
  - Fall [Unknown]
  - Dizziness [Unknown]
  - Face injury [Unknown]
